FAERS Safety Report 5939338-5 (Version None)
Quarter: 2008Q4

REPORT INFORMATION
  Report Type: 
  Country: None (occurrence: None)
  Receive Date: 20081103
  Receipt Date: 20081021
  Transmission Date: 20090506
  Serious: Yes (Death)
  Sender: FDA-Public Use
  Company Number: US-ELI_LILLY_AND_COMPANY-US200808005216

PATIENT
  Sex: Female

DRUGS (12)
  1. ZYPREXA [Suspect]
     Indication: SCHIZOPHRENIA
     Dosage: 5 MG, UNK
     Dates: start: 20080108
  2. ZYPREXA [Suspect]
     Dosage: 30 MG, DAILY (1/D)
     Dates: start: 20080513
  3. CLOZAPINE [Concomitant]
     Indication: SCHIZOPHRENIA
     Dosage: 12.5 MG, UNK
     Dates: start: 20050101
  4. CLOZAPINE [Concomitant]
     Dosage: 25 MG, UNK
     Dates: start: 20050101
  5. CLOZAPINE [Concomitant]
     Dosage: 50 MG, UNK
  6. CLOZAPINE [Concomitant]
     Dosage: 100 MG, UNK
  7. CLOZAPINE [Concomitant]
     Dosage: 400 MG, DAILY (1/D)
     Route: 048
     Dates: start: 20080501
  8. CLOZAPINE [Concomitant]
     Dosage: 800 MG, DAILY (1/D)
  9. CLOZAPINE [Concomitant]
     Dosage: 600 MG, DAILY (1/D)
  10. CLOZAPINE [Concomitant]
     Dosage: 400 MG, DAILY (1/D)
     Route: 048
  11. VALPROATE SODIUM [Concomitant]
     Dosage: 500 MG, 2/D
  12. LORAZEPAM [Concomitant]
     Dosage: 1 MG, EACH EVENING
     Route: 048

REACTIONS (2)
  - ARRHYTHMIA [None]
  - OVERDOSE [None]
